FAERS Safety Report 7979808-1 (Version None)
Quarter: 2011Q4

REPORT INFORMATION
  Report Type: 
  Country: None (occurrence: None)
  Receive Date: 20111214
  Receipt Date: 20111202
  Transmission Date: 20120403
  Serious: Yes (Hospitalization, Other)
  Sender: FDA-Public Use
  Company Number: GB-ROCHE-1020152

PATIENT
  Sex: Female

DRUGS (12)
  1. MIRENA [Suspect]
     Indication: PRODUCT USED FOR UNKNOWN INDICATION
  2. VENTOLIN [Concomitant]
  3. SLO-PHYLLIN [Concomitant]
  4. XOLAIR [Suspect]
     Indication: PRODUCT USED FOR UNKNOWN INDICATION
     Route: 058
     Dates: start: 20090901, end: 20100920
  5. BAMBUTEROL [Concomitant]
  6. FLUTICASONE PROPIONATE/SALMETEROL [Concomitant]
  7. MONTELUKAST SODIUM [Concomitant]
  8. MOMETASONE FUROATE [Concomitant]
  9. FEXOFENADINE [Concomitant]
  10. PREDNISOLONE [Concomitant]
  11. CALCICHEW D3 [Concomitant]
  12. LAMOTRIGINE [Concomitant]

REACTIONS (10)
  - MENORRHAGIA [None]
  - GRAND MAL CONVULSION [None]
  - VAGINAL HAEMORRHAGE [None]
  - PREMATURE LABOUR [None]
  - INFERTILITY [None]
  - PREMATURE BABY [None]
  - RASH PRURITIC [None]
  - RASH VESICULAR [None]
  - RASH PAPULAR [None]
  - MATERNAL EXPOSURE BEFORE PREGNANCY [None]
